FAERS Safety Report 4320078-3 (Version None)
Quarter: 2004Q1

REPORT INFORMATION
  Report Type: 
  Country: None (occurrence: None)
  Receive Date: 20040315
  Receipt Date: 20040205
  Transmission Date: 20041129
  Serious: No
  Sender: FDA-Public Use
  Company Number: 2004197902US

PATIENT
  Sex: Female

DRUGS (2)
  1. BEXTRA [Suspect]
  2. CELEBREX [Suspect]

REACTIONS (3)
  - DIZZINESS [None]
  - HEADACHE [None]
  - ILL-DEFINED DISORDER [None]
